FAERS Safety Report 10579479 (Version 1)
Quarter: 2014Q4

REPORT INFORMATION
  Report Type: Spontaneous
  Country: NL (occurrence: NL)
  Receive Date: 20141112
  Receipt Date: 20141112
  Transmission Date: 20150529
  Serious: Yes (Other)
  Sender: FDA-Public Use
  Company Number: NL-BAYER-2014-163726

PATIENT

DRUGS (1)
  1. GADOVIST 1,0 MMOL/ML [Suspect]
     Active Substance: GADOBUTROL
     Dosage: UNK UNK, ONCE
     Dates: start: 20141031, end: 20141031

REACTIONS (2)
  - Drug prescribing error [None]
  - Poisoning [None]

NARRATIVE: CASE EVENT DATE: 2014
